FAERS Safety Report 9619405 (Version 2)
Quarter: 2013Q4

REPORT INFORMATION
  Report Type: Spontaneous
  Country: IL (occurrence: IL)
  Receive Date: 20131014
  Receipt Date: 20131220
  Transmission Date: 20140711
  Serious: Yes (Other)
  Sender: FDA-Public Use
  Company Number: PHHY2013IL111184

PATIENT
  Age: 70 Year
  Sex: Female

DRUGS (5)
  1. LAMOTRIGINE [Suspect]
     Indication: CONVULSION
     Dosage: 25 MG PER DAY
     Route: 048
  2. LEVETIRACETAM [Suspect]
     Indication: CONVULSION
     Dosage: 500 MG, BID
  3. VALPROIC ACID [Suspect]
     Indication: CONVULSION
     Dosage: 250 MG, BID
     Route: 048
  4. VALPROIC ACID [Suspect]
     Dosage: SLOW INCREASE
     Route: 048
  5. TOPIRAMATE [Concomitant]
     Indication: CONVULSION
     Dosage: 25 MG, PER DAY
     Route: 048

REACTIONS (7)
  - Hypersensitivity [Recovering/Resolving]
  - Rash generalised [Recovering/Resolving]
  - Extrapyramidal disorder [Unknown]
  - Drug hypersensitivity [Recovered/Resolved]
  - Rash [Recovered/Resolved]
  - Pruritus [Recovered/Resolved]
  - Drug ineffective [Unknown]
